FAERS Safety Report 19724262 (Version 1)
Quarter: 2021Q3

REPORT INFORMATION
  Report Type: Spontaneous
  Country: US (occurrence: US)
  Receive Date: 20210819
  Receipt Date: 20210819
  Transmission Date: 20211014
  Serious: No
  Sender: FDA-Public Use
  Company Number: US-REDHILL BIOPHARMA-2021RDH00106

PATIENT
  Sex: Female
  Weight: 106.12 kg

DRUGS (5)
  1. PSYLLIUM [Concomitant]
     Active Substance: PLANTAGO SEED
  2. ORTHO TRI CYCLEN [Concomitant]
     Active Substance: ETHINYL ESTRADIOL\NORGESTIMATE
  3. MULTIVITAMIN [Concomitant]
     Active Substance: VITAMINS
  4. UNSPECIFIED ALLERGY MEDICATION [Concomitant]
     Active Substance: UNSPECIFIED INGREDIENT
  5. TALICIA [Suspect]
     Active Substance: AMOXICILLIN\OMEPRAZOLE MAGNESIUM\RIFABUTIN
     Indication: HELICOBACTER INFECTION
     Dosage: 4 CAPSULES, 3X/DAY (EVERY 8 HOURS) X 14 DAYS
     Route: 048
     Dates: start: 20210609, end: 20210622

REACTIONS (1)
  - Vaginal infection [Unknown]

NARRATIVE: CASE EVENT DATE: 202106
